FAERS Safety Report 24316687 (Version 2)
Quarter: 2024Q3

REPORT INFORMATION
  Report Type: Spontaneous
  Country: JP (occurrence: JP)
  Receive Date: 20240913
  Receipt Date: 20240924
  Transmission Date: 20241017
  Serious: Yes (Other)
  Sender: GILEAD
  Company Number: JP-GILEAD-2024-0687327

PATIENT
  Sex: Male

DRUGS (4)
  1. EPCLUSA [Interacting]
     Active Substance: SOFOSBUVIR\VELPATASVIR
     Indication: Hepatitis C
     Dosage: 1 DOSAGE FORM
     Route: 048
     Dates: start: 20240806, end: 20240903
  2. EPCLUSA [Interacting]
     Active Substance: SOFOSBUVIR\VELPATASVIR
     Indication: Hepatic cirrhosis
  3. XARELTO [Interacting]
     Active Substance: RIVAROXABAN
     Indication: Atrial fibrillation
     Dosage: 15 MG
     Route: 048
  4. LANSOPRAZOLE [Concomitant]
     Active Substance: LANSOPRAZOLE
     Dosage: 15 MG
     Route: 048

REACTIONS (5)
  - Cerebral haemorrhage [Unknown]
  - International normalised ratio increased [Unknown]
  - Drug level increased [Unknown]
  - Hepatic function abnormal [Unknown]
  - Drug interaction [Unknown]

NARRATIVE: CASE EVENT DATE: 20240903
